FAERS Safety Report 5813280-2 (Version None)
Quarter: 2008Q3

REPORT INFORMATION
  Report Type: 
  Country: None (occurrence: None)
  Receive Date: 20080717
  Receipt Date: 20080708
  Transmission Date: 20090109
  Serious: Yes (Other)
  Sender: FDA-Public Use
  Company Number: PRIUSA2000000985

PATIENT
  Sex: Female
  Weight: 47.17 kg

DRUGS (4)
  1. RENOVA [Suspect]
     Indication: THERAPEUTIC SKIN CARE TOPICAL
     Route: 003
  2. RENOVA [Suspect]
     Indication: EPHELIDES
     Route: 003
  3. CORTAID [Concomitant]
     Route: 061
  4. ANTI-DEPRESSANT [Concomitant]
     Indication: DEPRESSION
     Route: 065

REACTIONS (55)
  - ANAEMIA [None]
  - ARTHRALGIA [None]
  - BACTERIAL INFECTION [None]
  - BLINDNESS UNILATERAL [None]
  - BLISTER [None]
  - CHEILITIS [None]
  - CHEMICAL BURNS OF EYE [None]
  - CONJUNCTIVITIS [None]
  - CORNEAL OPACITY [None]
  - COUGH [None]
  - DELUSION [None]
  - DIABETES MELLITUS [None]
  - DIARRHOEA [None]
  - DRY EYE [None]
  - DRY MOUTH [None]
  - DYSPHAGIA [None]
  - EPSTEIN-BARR VIRUS INFECTION [None]
  - EYE INFECTION [None]
  - EYE SWELLING [None]
  - EYELID MARGIN CRUSTING [None]
  - EYELID OEDEMA [None]
  - FOREIGN BODY IN EYE [None]
  - GASTRIC DISORDER [None]
  - GINGIVITIS [None]
  - HAEMORRHAGE [None]
  - HELMINTHIC INFECTION [None]
  - INJURY [None]
  - INSOMNIA [None]
  - JOINT SWELLING [None]
  - LEUKOCYTOCLASTIC VASCULITIS [None]
  - LUNG DISORDER [None]
  - MENTAL DISORDER [None]
  - MIGRAINE [None]
  - NEUROPATHY PERIPHERAL [None]
  - OEDEMA PERIPHERAL [None]
  - PAIN [None]
  - PALPITATIONS [None]
  - PYREXIA [None]
  - RHINITIS [None]
  - SCAB [None]
  - SCAR [None]
  - SENSORY DISTURBANCE [None]
  - SILICOSIS [None]
  - SINUS CONGESTION [None]
  - SINUSITIS [None]
  - SKELETAL INJURY [None]
  - SKIN BURNING SENSATION [None]
  - SKIN DISORDER [None]
  - SKIN EXFOLIATION [None]
  - SWELLING FACE [None]
  - TOOTH INJURY [None]
  - URTICARIA [None]
  - VISION BLURRED [None]
  - VISUAL IMPAIRMENT [None]
  - WEIGHT DECREASED [None]
